FAERS Safety Report 21823872 (Version 1)
Quarter: 2023Q1

REPORT INFORMATION
  Report Type: Spontaneous
  Country: US (occurrence: US)
  Receive Date: 20230105
  Receipt Date: 20230105
  Transmission Date: 20230418
  Serious: No
  Sender: FDA-Public Use
  Company Number: US-CORIUM, INC.-2022COR000194

PATIENT
  Sex: Female

DRUGS (1)
  1. ADLARITY [Suspect]
     Active Substance: DONEPEZIL HYDROCHLORIDE
     Indication: Dementia
     Dosage: UNK, ONCE A WEEK
     Route: 062
     Dates: start: 202210

REACTIONS (1)
  - Skin irritation [Not Recovered/Not Resolved]
